FAERS Safety Report 7392812-X (Version None)
Quarter: 2011Q1

REPORT INFORMATION
  Report Type: 
  Country: None (occurrence: None)
  Receive Date: 20110330
  Receipt Date: 20110330
  Transmission Date: 20110831
  Serious: Yes (Life-Threatening)
  Sender: FDA-Public Use
  Company Number: None

PATIENT
  Age: 79 Year
  Sex: Female
  Weight: 79.3795 kg

DRUGS (1)
  1. AZOR [Suspect]
     Indication: HYPERTENSION
     Dosage: TAKE ONE PILL MORN AND EVE.

REACTIONS (4)
  - FEELING ABNORMAL [None]
  - JOINT SWELLING [None]
  - GLOMERULAR FILTRATION RATE DECREASED [None]
  - OEDEMA PERIPHERAL [None]
